FAERS Safety Report 10619931 (Version 1)
Quarter: 2014Q4

REPORT INFORMATION
  Report Type: Spontaneous
  Country: US (occurrence: US)
  Receive Date: 20141202
  Receipt Date: 20141202
  Transmission Date: 20150529
  Serious: No
  Sender: FDA-Public Use
  Company Number: US-BAYER-2014-178095

PATIENT
  Age: 72 Year
  Sex: Female
  Weight: 57 kg

DRUGS (3)
  1. VALSARTAN. [Concomitant]
     Active Substance: VALSARTAN
  2. SIMVASTATIN. [Concomitant]
     Active Substance: SIMVASTATIN
  3. ALEVE PM [Suspect]
     Active Substance: DIPHENHYDRAMINE HYDROCHLORIDE\NAPROXEN SODIUM
     Indication: ANALGESIC THERAPY
     Dosage: 2 DF, PRN
     Route: 048
     Dates: start: 201410

REACTIONS (1)
  - Drug ineffective [None]

NARRATIVE: CASE EVENT DATE: 201410
